FAERS Safety Report 6720710-0 (Version None)
Quarter: 2010Q2

REPORT INFORMATION
  Report Type: 
  Country: None (occurrence: None)
  Receive Date: 20100510
  Receipt Date: 20100503
  Transmission Date: 20101027
  Serious: Yes (Life-Threatening, Other)
  Sender: FDA-Public Use
  Company Number: 009655

PATIENT
  Age: 39 Year
  Sex: Female

DRUGS (3)
  1. BUSULFEX [Suspect]
     Dosage: 130 MG/M2 INTRAVENOUS
     Route: 042
  2. MELPHALAN HYDROCHLORIDE [Concomitant]
  3. THIOTEPA [Concomitant]

REACTIONS (4)
  - BLOOD BILIRUBIN INCREASED [None]
  - GASTROINTESTINAL TOXICITY [None]
  - MUCOSAL INFLAMMATION [None]
  - VENOOCCLUSIVE DISEASE [None]
